FAERS Safety Report 14459802 (Version 2)
Quarter: 2019Q1

REPORT INFORMATION
  Report Type: Other
  Country: US (occurrence: US)
  Receive Date: 20180130
  Receipt Date: 20190126
  Transmission Date: 20190417
  Serious: No
  Sender: FDA-Public Use
  Company Number: US-ACORDA-ACO_139434_2017

PATIENT
  Age: 76 Year
  Sex: Female

DRUGS (6)
  1. MOBIC [Concomitant]
     Active Substance: MELOXICAM
     Indication: ARTHRITIS
     Dosage: UNK
     Route: 065
  2. AMPYRA [Suspect]
     Active Substance: DALFAMPRIDINE
     Indication: GAIT DISTURBANCE
  3. ALEVE [Concomitant]
     Active Substance: NAPROXEN SODIUM
     Indication: ARTHRITIS
     Dosage: UNK
     Route: 065
  4. FLEXERIL [Suspect]
     Active Substance: CYCLOBENZAPRINE HYDROCHLORIDE
     Indication: PRODUCT USED FOR UNKNOWN INDICATION
     Dosage: UNK
     Route: 065
  5. AMPYRA [Suspect]
     Active Substance: DALFAMPRIDINE
     Indication: MULTIPLE SCLEROSIS
     Dosage: 10 MG, BID
     Route: 048
     Dates: end: 20180320
  6. MYRBETRIQ [Suspect]
     Active Substance: MIRABEGRON
     Indication: BLADDER SPASM
     Dosage: UNK
     Route: 065

REACTIONS (14)
  - Bladder spasm [Recovered/Resolved]
  - Muscular weakness [Not Recovered/Not Resolved]
  - Drug interaction [Unknown]
  - Urinary tract infection [Recovered/Resolved]
  - Gait disturbance [Not Recovered/Not Resolved]
  - Pneumonia [Recovered/Resolved]
  - Urinary tract infection [Recovered/Resolved]
  - Therapy cessation [Unknown]
  - Bronchitis [Recovered/Resolved]
  - Arthritis [Not Recovered/Not Resolved]
  - Myalgia [Recovered/Resolved]
  - Asthenia [Not Recovered/Not Resolved]
  - Cough [Not Recovered/Not Resolved]
  - Joint stiffness [Not Recovered/Not Resolved]

NARRATIVE: CASE EVENT DATE: 2014
